FAERS Safety Report 6261238-4 (Version None)
Quarter: 2009Q3

REPORT INFORMATION
  Report Type: 
  Country: None (occurrence: None)
  Receive Date: 20090709
  Receipt Date: 20090626
  Transmission Date: 20100115
  Serious: Yes (Other)
  Sender: FDA-Public Use
  Company Number: US-PFIZER INC-2008065024

PATIENT
  Sex: Male
  Weight: 74.83 kg

DRUGS (6)
  1. CHANTIX [Suspect]
     Indication: SMOKING CESSATION THERAPY
     Dosage: 1 MG, 2X/DAY
     Route: 048
     Dates: start: 20080704, end: 20080815
  2. ENALAPRIL [Concomitant]
  3. KLONOPIN [Concomitant]
  4. XANAX [Concomitant]
  5. NEURONTIN [Concomitant]
  6. LAMOTRIGINE [Concomitant]

REACTIONS (3)
  - MULTIPLE SCLEROSIS [None]
  - SENSORY LOSS [None]
  - WALKING AID USER [None]
